FAERS Safety Report 13344092 (Version 1)
Quarter: 2017Q1

REPORT INFORMATION
  Report Type: Spontaneous
  Country: US (occurrence: US)
  Receive Date: 20170316
  Receipt Date: 20170316
  Transmission Date: 20170428
  Serious: No
  Sender: FDA-Public Use
  Company Number: US-009507513-1703USA006761

PATIENT
  Age: 48 Year
  Sex: Male

DRUGS (2)
  1. CUBICIN [Suspect]
     Active Substance: DAPTOMYCIN
     Indication: ENDOCARDITIS BACTERIAL
  2. CUBICIN [Suspect]
     Active Substance: DAPTOMYCIN
     Indication: TOOTH ABSCESS

REACTIONS (1)
  - Drug hypersensitivity [Unknown]
